FAERS Safety Report 21397346 (Version 1)
Quarter: 2022Q3

REPORT INFORMATION
  Report Type: Spontaneous
  Country: US (occurrence: None)
  Receive Date: 20220929
  Receipt Date: 20220929
  Transmission Date: 20221027
  Serious: No
  Sender: FDA-Public Use
  Company Number: None

PATIENT
  Age: 27 Year
  Sex: Female
  Weight: 138.00 kg

DRUGS (1)
  1. BENLYSTA [Suspect]
     Active Substance: BELIMUMAB
     Indication: Systemic lupus erythematosus
     Dosage: INJECT 200MG  SUBCUTANEOUSLY ONCE A WEEK  AS DIRECTED?
     Route: 058
     Dates: start: 202203

REACTIONS (2)
  - Herpes zoster [None]
  - COVID-19 [None]
